FAERS Safety Report 23065403 (Version 1)
Quarter: 2023Q4

REPORT INFORMATION
  Report Type: Spontaneous
  Country: JP (occurrence: JP)
  Receive Date: 20231013
  Receipt Date: 20231013
  Transmission Date: 20240109
  Serious: Yes (Other)
  Sender: FDA-Public Use
  Company Number: JP-ELI_LILLY_AND_COMPANY-JP202310001942

PATIENT
  Age: 62 Year
  Sex: Male

DRUGS (4)
  1. CYRAMZA [Suspect]
     Active Substance: RAMUCIRUMAB
     Indication: Colon cancer
     Route: 041
  2. FLUOROURACIL [Concomitant]
     Active Substance: FLUOROURACIL
     Indication: Colon cancer
  3. LEVOLEUCOVORIN CALCIUM [Concomitant]
     Active Substance: LEVOLEUCOVORIN CALCIUM
     Indication: Colon cancer
  4. IRINOTECAN HYDROCHLORIDE [Concomitant]
     Active Substance: IRINOTECAN HYDROCHLORIDE
     Indication: Colon cancer

REACTIONS (2)
  - Renal-limited thrombotic microangiopathy [Recovering/Resolving]
  - Nephrotic syndrome [Recovering/Resolving]
